FAERS Safety Report 8545530-6 (Version None)
Quarter: 2012Q3

REPORT INFORMATION
  Report Type: 
  Country: None (occurrence: None)
  Receive Date: 20120727
  Receipt Date: 20111028
  Transmission Date: 20120928
  Serious: No
  Sender: FDA-Public Use
  Company Number: US-ASTRAZENECA-2011SE65509

PATIENT
  Age: 54 Year
  Sex: Female
  Weight: 52.6 kg

DRUGS (4)
  1. LAMITOL [Concomitant]
  2. ATIVAN [Concomitant]
     Indication: SLEEP DISORDER
  3. SEROQUEL XR [Suspect]
     Indication: DEPRESSION
     Route: 048
     Dates: start: 20111022
  4. CELEXA [Concomitant]

REACTIONS (5)
  - FEELING ABNORMAL [None]
  - IMPAIRED WORK ABILITY [None]
  - DIZZINESS [None]
  - DRUG INEFFECTIVE [None]
  - SLEEP DISORDER [None]
